FAERS Safety Report 9861677 (Version 1)
Quarter: 2014Q1

REPORT INFORMATION
  Report Type: Spontaneous
  Country: US (occurrence: None)
  Receive Date: 20140130
  Receipt Date: 20140130
  Transmission Date: 20141002
  Serious: Yes (Hospitalization)
  Sender: FDA-Public Use
  Company Number: FK201400248

PATIENT
  Age: 40 Year
  Sex: Female

DRUGS (17)
  1. OXALIPLATIN (MANUFACTURER UNKNOWN) (OXALIPLATIN) (OXALIPLATIN) [Suspect]
     Indication: COLORECTAL CANCER
     Dosage: 140 MG/M2, INTRAVENOUS
     Route: 042
  2. OXALIPLATIN (MANUFACTURER UNKNOWN) (OXALIPLATIN) (OXALIPLATIN) [Suspect]
     Indication: METASTASES TO LIVER
     Dosage: 140 MG/M2, INTRAVENOUS
     Route: 042
  3. LEUCOVORIN (CALCIUM FOLINATE) [Concomitant]
  4. BEVACIZUMAB (BEVACIZUMAB) [Concomitant]
  5. FLUOROURACIL (FLUOROURACIL) [Concomitant]
  6. IRINOTECAN (IRINOTECAN) [Concomitant]
  7. CETUXIMAB (CETUXIMAB) [Concomitant]
  8. PANITUMUMAB (PANITUMUMABZ) [Concomitant]
  9. CAPECITABINE (CAPECITABINE) [Concomitant]
  10. GEMCITABINE (GEMCITABINE) [Concomitant]
  11. MITOMYCIN (MITOMYCIN) [Concomitant]
  12. CISPLATIN W/DOXORUBICIN (CISPLATIN W/DOXORUBICINZ) [Concomitant]
  13. ALPRAZOLAM (ALPRAZOLAM) [Concomitant]
  14. FENTANYL (FENTANYL) [Concomitant]
  15. HYDROCODONE W/HOMATROPINE (HYDROCODONE W/HOMATROPINE) [Concomitant]
  16. LORAZEPAM (LORAZEPAM) [Concomitant]
  17. METOPROLOL (METOPROLOL) [Concomitant]

REACTIONS (6)
  - Infusion related reaction [None]
  - Hyperbilirubinaemia [None]
  - Oxygen saturation decreased [None]
  - Hypertension [None]
  - Aspartate aminotransferase increased [None]
  - Blood alkaline phosphatase increased [None]
